FAERS Safety Report 9182135 (Version 2)
Quarter: 2014Q2

REPORT INFORMATION
  Report Type: Spontaneous
  Country: US (occurrence: None)
  Receive Date: 20120621
  Receipt Date: 20140514
  Transmission Date: 20141212
  Serious: Yes (Hospitalization)
  Sender: FDA-Public Use
  Company Number: 053970

PATIENT
  Age: 51 Year
  Sex: Female
  Weight: 103.4 kg

DRUGS (5)
  1. CIMZIA [Suspect]
     Indication: CROHN^S DISEASE
     Dosage: 1X/4 WEEKS SUBCUTANEOUS
     Route: 058
     Dates: start: 20110113
  2. CIPRO [Concomitant]
  3. HYOSCYAMORE [Concomitant]
  4. FISH OIL [Concomitant]
  5. VITAMIN D [Concomitant]

REACTIONS (3)
  - Small intestinal obstruction [None]
  - Crohn^s disease [None]
  - Inappropriate schedule of drug administration [None]
